FAERS Safety Report 17679517 (Version 1)
Quarter: 2020Q2

REPORT INFORMATION
  Report Type: Report from Study
  Country: CA (occurrence: CA)
  Receive Date: 20200417
  Receipt Date: 20200417
  Transmission Date: 20200714
  Serious: Yes (Other)
  Sender: FDA-Public Use
  Company Number: CA-EMD SERONO-9157608

PATIENT
  Age: 37 Year
  Sex: Female

DRUGS (1)
  1. REBIF [Suspect]
     Active Substance: INTERFERON BETA-1A
     Indication: PRODUCT USED FOR UNKNOWN INDICATION
     Route: 058

REACTIONS (7)
  - Headache [Unknown]
  - Drug ineffective [Unknown]
  - Nausea [Unknown]
  - Nephrolithiasis [Unknown]
  - Migraine [Unknown]
  - Vomiting [Unknown]
  - Head discomfort [Unknown]
